FAERS Safety Report 14470451 (Version 1)
Quarter: 2018Q1

REPORT INFORMATION
  Report Type: Spontaneous
  Country: ES (occurrence: ES)
  Receive Date: 20180131
  Receipt Date: 20180131
  Transmission Date: 20180509
  Serious: Yes (Other)
  Sender: FDA-Public Use
  Company Number: ES-BAXTER-2018BAX003016

PATIENT
  Age: 41 Year

DRUGS (1)
  1. GENOXAL [Suspect]
     Active Substance: CYCLOPHOSPHAMIDE
     Indication: BREAST CANCER
     Route: 065
     Dates: start: 201710

REACTIONS (2)
  - Hepatitis B reactivation [Not Recovered/Not Resolved]
  - Drug monitoring procedure incorrectly performed [Recovered/Resolved]

NARRATIVE: CASE EVENT DATE: 201710
